FAERS Safety Report 8928616 (Version 1)
Quarter: 2012Q4

REPORT INFORMATION
  Report Type: 
  Country: EC (occurrence: EC)
  Receive Date: 20121128
  Receipt Date: 20121128
  Transmission Date: 20130627
  Serious: Yes (Death)
  Sender: FDA-Public Use
  Company Number: PHHY2012EC108777

PATIENT
  Sex: Female

DRUGS (1)
  1. EXFORGE [Suspect]
     Route: 048

REACTIONS (2)
  - Death [Fatal]
  - Swelling [Unknown]
